FAERS Safety Report 6676502-4 (Version None)
Quarter: 2010Q2

REPORT INFORMATION
  Report Type: 
  Country: None (occurrence: None)
  Receive Date: 20100412
  Receipt Date: 20100408
  Transmission Date: 20101027
  Serious: Yes (Death, Other)
  Sender: FDA-Public Use
  Company Number: PHHY2010JP21834

PATIENT
  Age: 74 Year
  Sex: Male

DRUGS (1)
  1. RASILEZ [Suspect]
     Indication: HYPERTENSION
     Route: 048

REACTIONS (4)
  - BLOOD POTASSIUM INCREASED [None]
  - FEELING ABNORMAL [None]
  - PULMONARY HAEMORRHAGE [None]
  - PULMONARY OEDEMA [None]
